FAERS Safety Report 16826447 (Version 1)
Quarter: 2019Q3

REPORT INFORMATION
  Report Type: Spontaneous
  Country: US (occurrence: US)
  Receive Date: 20190919
  Receipt Date: 20190919
  Transmission Date: 20191005
  Serious: Yes (Hospitalization)
  Sender: FDA-Public Use
  Company Number: US-PFIZER INC-2019397518

PATIENT
  Age: 37 Year
  Sex: Male

DRUGS (2)
  1. THIOTHIXENE HCL [Suspect]
     Active Substance: THIOTHIXENE HYDROCHLORIDE
     Indication: SCHIZOAFFECTIVE DISORDER
     Dosage: UNK
     Route: 048
     Dates: start: 2000, end: 201904
  2. THIOTHIXENE HCL [Suspect]
     Active Substance: THIOTHIXENE HYDROCHLORIDE
     Indication: TYPE IV HYPERSENSITIVITY REACTION

REACTIONS (8)
  - Obsessive-compulsive disorder [Unknown]
  - Loss of personal independence in daily activities [Unknown]
  - Aggression [Unknown]
  - Aphthous ulcer [Unknown]
  - Muscle twitching [Unknown]
  - Depression [Unknown]
  - Paranoia [Unknown]
  - Tremor [Unknown]

NARRATIVE: CASE EVENT DATE: 200004
